FAERS Safety Report 13165119 (Version 1)
Quarter: 2017Q1

REPORT INFORMATION
  Report Type: Spontaneous
  Country: US (occurrence: US)
  Receive Date: 20170130
  Receipt Date: 20170130
  Transmission Date: 20170428
  Serious: Yes (Hospitalization)
  Sender: FDA-Public Use
  Company Number: US-STI PHARMA LLC-1062539

PATIENT
  Age: 61 Year
  Sex: Female
  Weight: 43.09 kg

DRUGS (6)
  1. ETHAMBUTOL HYDROCHLORIDE. [Suspect]
     Active Substance: ETHAMBUTOL HYDROCHLORIDE
  2. PYRIDOXINE HYDROCHLORIDE. [Suspect]
     Active Substance: PYRIDOXINE HYDROCHLORIDE
  3. STREPTOMYCIN [Suspect]
     Active Substance: STREPTOMYCIN\STREPTOMYCIN SULFATE
  4. RIFAMPIN. [Suspect]
     Active Substance: RIFAMPIN
  5. LEVOFLOXACIN. [Suspect]
     Active Substance: LEVOFLOXACIN
  6. PYRAZINAMIDE. [Suspect]
     Active Substance: PYRAZINAMIDE

REACTIONS (2)
  - Drug reaction with eosinophilia and systemic symptoms [Unknown]
  - Hepatotoxicity [Unknown]
